FAERS Safety Report 11547771 (Version 1)
Quarter: 2015Q3

REPORT INFORMATION
  Report Type: Spontaneous
  Country: US (occurrence: US)
  Receive Date: 20150924
  Receipt Date: 20150924
  Transmission Date: 20151125
  Serious: Yes (Other)
  Sender: FDA-Public Use
  Company Number: US-ASTRAZENECA-2015SE90195

PATIENT
  Sex: Male

DRUGS (5)
  1. BYETTA [Suspect]
     Active Substance: EXENATIDE
     Indication: TYPE 2 DIABETES MELLITUS
     Dosage: 250 MCG / 2.4 ML PEN, 5 MCG TWO TIMES A DAY
     Route: 058
     Dates: end: 201405
  2. BENECAR [Concomitant]
     Indication: BLOOD PRESSURE ABNORMAL
  3. BYETTA [Suspect]
     Active Substance: EXENATIDE
     Indication: TYPE 2 DIABETES MELLITUS
     Dosage: 250 MCG / 2.4 ML PEN, 10 MCG TWO TIMES A DAY
     Route: 058
  4. AMLODOPINE [Concomitant]
     Indication: BLOOD PRESSURE ABNORMAL
  5. GLYBURIDE. [Concomitant]
     Active Substance: GLYBURIDE

REACTIONS (2)
  - Lower limb fracture [Unknown]
  - Accident [Unknown]
